FAERS Safety Report 4534405-5 (Version None)
Quarter: 2004Q4

REPORT INFORMATION
  Report Type: 
  Country: None (occurrence: None)
  Receive Date: 20041222
  Receipt Date: 20031113
  Transmission Date: 20050328
  Serious: No
  Sender: FDA-Public Use
  Company Number: US-BRISTOL-MYERS SQUIBB COMPANY-12435210

PATIENT
  Age: 64 Year
  Sex: Female
  Weight: 63 kg

DRUGS (4)
  1. QUESTRAN LIGHT [Suspect]
     Indication: DIARRHOEA
     Route: 048
  2. GLUCOPHAGE [Concomitant]
  3. COZAAR [Concomitant]
  4. GLUCOSAMINE [Concomitant]

REACTIONS (3)
  - ANOREXIA [None]
  - CONSTIPATION [None]
  - OEDEMA PERIPHERAL [None]
